FAERS Safety Report 4570920-6 (Version None)
Quarter: 2005Q1

REPORT INFORMATION
  Report Type: 
  Country: None (occurrence: None)
  Receive Date: 20050204
  Receipt Date: 20041108
  Transmission Date: 20050727
  Serious: Yes (Other)
  Sender: FDA-Public Use
  Company Number: JP-MERCK-0411USA02143

PATIENT
  Age: 61 Year
  Sex: Female

DRUGS (3)
  1. SINGULAIR [Suspect]
     Indication: ASTHMA
     Route: 048
     Dates: start: 20040107, end: 20040923
  2. UNIPHYL [Concomitant]
     Indication: ASTHMA
     Route: 048
     Dates: start: 20031014, end: 20040923
  3. FLUTICASONE PROPIONATE [Concomitant]
     Route: 065
     Dates: start: 20031021, end: 20040923

REACTIONS (1)
  - ALLERGIC GRANULOMATOUS ANGIITIS [None]
